FAERS Safety Report 9438058 (Version 1)
Quarter: 2013Q3

REPORT INFORMATION
  Report Type: Spontaneous
  Country: US (occurrence: US)
  Receive Date: 20130802
  Receipt Date: 20130802
  Transmission Date: 20140515
  Serious: No
  Sender: FDA-Public Use
  Company Number: US-BRISTOL-MYERS SQUIBB COMPANY-16760126

PATIENT
  Age: 71 Year
  Sex: Male

DRUGS (2)
  1. COUMADIN [Suspect]
     Dosage: UNK-UNK?21JUN12-ONG
  2. ENOXAPARIN SODIUM [Suspect]
     Dosage: FORMULATION-100MG/ML INJ SOL,RESTARTED ON 21JUN12
     Route: 051
     Dates: start: 20120617

REACTIONS (1)
  - Haematochezia [Unknown]
